FAERS Safety Report 25751971 (Version 1)
Quarter: 2025Q3

REPORT INFORMATION
  Report Type: Spontaneous
  Country: US (occurrence: US)
  Receive Date: 20250902
  Receipt Date: 20250902
  Transmission Date: 20251021
  Serious: No
  Sender: MYLAN
  Company Number: US-MYLANLABS-2023M1036080

PATIENT
  Sex: Male

DRUGS (12)
  1. FENTANYL TRANSDERMAL SYSTEM [Suspect]
     Active Substance: FENTANYL
     Indication: Pain
     Dosage: 75 MICROGRAM, QH (EVERY HOUR)
     Route: 062
  2. FENTANYL TRANSDERMAL SYSTEM [Suspect]
     Active Substance: FENTANYL
     Dosage: 75 MICROGRAM, QH (EVERY HOUR)
  3. FENTANYL TRANSDERMAL SYSTEM [Suspect]
     Active Substance: FENTANYL
     Dosage: 75 MICROGRAM, QH (EVERY HOUR)
  4. FENTANYL TRANSDERMAL SYSTEM [Suspect]
     Active Substance: FENTANYL
     Dosage: 75 MICROGRAM, QH (EVERY HOUR)
     Route: 062
  5. FENTANYL TRANSDERMAL SYSTEM [Suspect]
     Active Substance: FENTANYL
     Dosage: 75 MICROGRAM, QH (EVERY HOUR)
  6. FENTANYL TRANSDERMAL SYSTEM [Suspect]
     Active Substance: FENTANYL
     Dosage: 75 MICROGRAM, QH (EVERY HOUR)
  7. FENTANYL TRANSDERMAL SYSTEM [Suspect]
     Active Substance: FENTANYL
     Dosage: 75 MICROGRAM, QH (EVERY HOUR)
     Route: 062
  8. FENTANYL TRANSDERMAL SYSTEM [Suspect]
     Active Substance: FENTANYL
     Dosage: 75 MICROGRAM, QH (EVERY HOUR)
     Route: 062
  9. FENTANYL TRANSDERMAL SYSTEM [Suspect]
     Active Substance: FENTANYL
     Dosage: 75 MICROGRAM, QH (EVERY HOUR)
     Route: 062
  10. FENTANYL TRANSDERMAL SYSTEM [Suspect]
     Active Substance: FENTANYL
     Dosage: 75 MICROGRAM, QH (EVERY HOUR)
  11. FENTANYL TRANSDERMAL SYSTEM [Suspect]
     Active Substance: FENTANYL
     Dosage: 75 MICROGRAM, QH (EVERY HOUR)
  12. FENTANYL TRANSDERMAL SYSTEM [Suspect]
     Active Substance: FENTANYL
     Dosage: 75 MICROGRAM, QH (EVERY HOUR)
     Route: 062

REACTIONS (3)
  - Product substitution issue [Unknown]
  - Wrong technique in product usage process [Unknown]
  - Product adhesion issue [Unknown]
